FAERS Safety Report 7059611-X (Version None)
Quarter: 2010Q4

REPORT INFORMATION
  Report Type: 
  Country: None (occurrence: None)
  Receive Date: 20101025
  Receipt Date: 20101020
  Transmission Date: 20110411
  Serious: No
  Sender: FDA-Public Use
  Company Number: US-ROXANE LABORATORIES, INC.-2010-RO-01202RO

PATIENT
  Sex: Female

DRUGS (7)
  1. PREDNISONE [Suspect]
     Indication: DERMATITIS ALLERGIC
     Route: 048
     Dates: start: 20100901, end: 20100909
  2. BETAMETHASONE DIPROPIONATE [Suspect]
     Indication: DERMATITIS ALLERGIC
     Route: 061
  3. DAPSONE [Concomitant]
     Indication: DERMATITIS ALLERGIC
     Route: 030
     Dates: start: 20100831, end: 20100831
  4. ESTROVEN [Concomitant]
     Indication: HOT FLUSH
     Dates: start: 20100601
  5. VITAMIN E [Concomitant]
     Indication: MENOPAUSAL SYMPTOMS
     Dates: start: 20100601
  6. VITAMIN B COMPLEX CAP [Concomitant]
     Indication: MENOPAUSAL SYMPTOMS
     Dates: start: 20100601
  7. IBUPROFEN [Concomitant]
     Indication: PAIN

REACTIONS (5)
  - ERYTHEMA [None]
  - FEELING HOT [None]
  - FEELING JITTERY [None]
  - FLUSHING [None]
  - PRURITUS [None]
